APPROVED DRUG PRODUCT: PAMIDRONATE DISODIUM
Active Ingredient: PAMIDRONATE DISODIUM
Strength: 30MG/10ML (3MG/ML)
Dosage Form/Route: INJECTABLE;INJECTION
Application: A076153 | Product #001
Applicant: TEVA PHARMACEUTICALS USA
Approved: Mar 27, 2002 | RLD: No | RS: No | Type: DISCN